FAERS Safety Report 20103009 (Version 6)
Quarter: 2022Q3

REPORT INFORMATION
  Report Type: Spontaneous
  Country: US (occurrence: US)
  Receive Date: 20211123
  Receipt Date: 20220718
  Transmission Date: 20221027
  Serious: No
  Sender: FDA-Public Use
  Company Number: US-KARYOPHARM-2021KPT001295

PATIENT

DRUGS (7)
  1. XPOVIO [Suspect]
     Active Substance: SELINEXOR
     Indication: Plasma cell myeloma
     Dosage: 100 MG, WEEKLY
     Route: 048
     Dates: start: 20210923
  2. XPOVIO [Suspect]
     Active Substance: SELINEXOR
     Dosage: 80 MG, 2X/WEEK
     Route: 048
     Dates: start: 2021, end: 202111
  3. XPOVIO [Suspect]
     Active Substance: SELINEXOR
     Dosage: 80 MG, 2X/WEEK
     Route: 048
     Dates: start: 202111, end: 202202
  4. XPOVIO [Suspect]
     Active Substance: SELINEXOR
     Dosage: 100 MG WEEKLY FOR 3 WEEKS ON, 1 WEEK OFF
     Route: 048
     Dates: start: 202202
  5. ZOFRAN [Concomitant]
     Active Substance: ONDANSETRON HYDROCHLORIDE
     Indication: Nausea
  6. DEXAMETHASONE [Concomitant]
     Active Substance: DEXAMETHASONE
  7. VELCADE [Concomitant]
     Active Substance: BORTEZOMIB

REACTIONS (4)
  - Nausea [Unknown]
  - Arthralgia [Recovered/Resolved]
  - Product dose omission issue [Unknown]
  - Treatment noncompliance [Unknown]

NARRATIVE: CASE EVENT DATE: 20210101
